FAERS Safety Report 5401119-9 (Version None)
Quarter: 2007Q3

REPORT INFORMATION
  Report Type: 
  Country: None (occurrence: None)
  Receive Date: 20070731
  Receipt Date: 20070724
  Transmission Date: 20080115
  Serious: Yes (Hospitalization)
  Sender: FDA-Public Use
  Company Number: PHRM2007FR01912

PATIENT
  Age: 11 Year
  Sex: Female
  Weight: 39 kg

DRUGS (1)
  1. TRILEPTAL [Suspect]
     Indication: PARTIAL SEIZURES
     Route: 048
     Dates: start: 20070329, end: 20070418

REACTIONS (3)
  - PETECHIAE [None]
  - PLATELET COUNT DECREASED [None]
  - THROMBOCYTOPENIC PURPURA [None]
